FAERS Safety Report 25215147 (Version 2)
Quarter: 2025Q2

REPORT INFORMATION
  Report Type: Spontaneous
  Country: US (occurrence: US)
  Receive Date: 20250418
  Receipt Date: 20250604
  Transmission Date: 20250717
  Serious: No
  Sender: MYLAN
  Company Number: US-MYLANLABS-2025M1031640

PATIENT
  Age: 36 Year
  Sex: Female

DRUGS (44)
  1. ZOLOFT [Suspect]
     Active Substance: SERTRALINE HYDROCHLORIDE
     Indication: Product used for unknown indication
     Route: 065
  2. ZOLOFT [Suspect]
     Active Substance: SERTRALINE HYDROCHLORIDE
  3. ZOLOFT [Suspect]
     Active Substance: SERTRALINE HYDROCHLORIDE
  4. ZOLOFT [Suspect]
     Active Substance: SERTRALINE HYDROCHLORIDE
     Route: 065
  5. ZOLOFT [Suspect]
     Active Substance: SERTRALINE HYDROCHLORIDE
  6. ZOLOFT [Suspect]
     Active Substance: SERTRALINE HYDROCHLORIDE
  7. ZOLOFT [Suspect]
     Active Substance: SERTRALINE HYDROCHLORIDE
     Route: 065
  8. ZOLOFT [Suspect]
     Active Substance: SERTRALINE HYDROCHLORIDE
     Route: 065
  9. ZOLOFT [Suspect]
     Active Substance: SERTRALINE HYDROCHLORIDE
     Route: 065
  10. ZOLOFT [Suspect]
     Active Substance: SERTRALINE HYDROCHLORIDE
  11. ZOLOFT [Suspect]
     Active Substance: SERTRALINE HYDROCHLORIDE
  12. ZOLOFT [Suspect]
     Active Substance: SERTRALINE HYDROCHLORIDE
     Route: 065
  13. LUMRYZ [Suspect]
     Active Substance: SODIUM OXYBATE
     Indication: Narcolepsy
     Dosage: 6 GRAM, PM (ONCE NIGHTLY)
     Route: 048
     Dates: start: 20240529, end: 2024
  14. LUMRYZ [Suspect]
     Active Substance: SODIUM OXYBATE
     Dosage: 6 GRAM, PM (ONCE NIGHTLY)
     Dates: start: 20240529, end: 2024
  15. LUMRYZ [Suspect]
     Active Substance: SODIUM OXYBATE
     Dosage: 6 GRAM, PM (ONCE NIGHTLY)
     Dates: start: 20240529, end: 2024
  16. LUMRYZ [Suspect]
     Active Substance: SODIUM OXYBATE
     Dosage: 6 GRAM, PM (ONCE NIGHTLY)
     Route: 048
     Dates: start: 20240529, end: 2024
  17. LUMRYZ [Suspect]
     Active Substance: SODIUM OXYBATE
     Dosage: 7.5 GRAM ,PM ONCE NIGHTLY
     Route: 048
     Dates: start: 202408
  18. LUMRYZ [Suspect]
     Active Substance: SODIUM OXYBATE
     Dosage: 7.5 GRAM ,PM ONCE NIGHTLY
     Dates: start: 202408
  19. LUMRYZ [Suspect]
     Active Substance: SODIUM OXYBATE
     Dosage: 7.5 GRAM ,PM ONCE NIGHTLY
     Dates: start: 202408
  20. LUMRYZ [Suspect]
     Active Substance: SODIUM OXYBATE
     Dosage: 7.5 GRAM ,PM ONCE NIGHTLY
     Route: 048
     Dates: start: 202408
  21. LUMRYZ [Suspect]
     Active Substance: SODIUM OXYBATE
     Dosage: 6 GRAM, PM (NIGHT)
     Route: 048
  22. LUMRYZ [Suspect]
     Active Substance: SODIUM OXYBATE
     Dosage: 6 GRAM, PM (NIGHT)
  23. LUMRYZ [Suspect]
     Active Substance: SODIUM OXYBATE
     Dosage: 6 GRAM, PM (NIGHT)
  24. LUMRYZ [Suspect]
     Active Substance: SODIUM OXYBATE
     Dosage: 6 GRAM, PM (NIGHT)
     Route: 048
  25. LUMRYZ [Suspect]
     Active Substance: SODIUM OXYBATE
     Dosage: UNK, PM (ONCE NIGHTLY)
     Route: 048
     Dates: start: 2025
  26. LUMRYZ [Suspect]
     Active Substance: SODIUM OXYBATE
     Dosage: UNK, PM (ONCE NIGHTLY)
     Dates: start: 2025
  27. LUMRYZ [Suspect]
     Active Substance: SODIUM OXYBATE
     Dosage: UNK, PM (ONCE NIGHTLY)
     Dates: start: 2025
  28. LUMRYZ [Suspect]
     Active Substance: SODIUM OXYBATE
     Dosage: UNK, PM (ONCE NIGHTLY)
     Route: 048
     Dates: start: 2025
  29. PROZAC [Concomitant]
     Active Substance: FLUOXETINE HYDROCHLORIDE
  30. PROZAC [Concomitant]
     Active Substance: FLUOXETINE HYDROCHLORIDE
     Route: 065
  31. PROZAC [Concomitant]
     Active Substance: FLUOXETINE HYDROCHLORIDE
     Route: 065
  32. PROZAC [Concomitant]
     Active Substance: FLUOXETINE HYDROCHLORIDE
  33. SPIRONOLACTONE [Concomitant]
     Active Substance: SPIRONOLACTONE
  34. SPIRONOLACTONE [Concomitant]
     Active Substance: SPIRONOLACTONE
     Route: 065
  35. SPIRONOLACTONE [Concomitant]
     Active Substance: SPIRONOLACTONE
     Route: 065
  36. SPIRONOLACTONE [Concomitant]
     Active Substance: SPIRONOLACTONE
  37. NUVARING [Concomitant]
     Active Substance: ETHINYL ESTRADIOL\ETONOGESTREL
  38. NUVARING [Concomitant]
     Active Substance: ETHINYL ESTRADIOL\ETONOGESTREL
     Route: 065
  39. NUVARING [Concomitant]
     Active Substance: ETHINYL ESTRADIOL\ETONOGESTREL
     Route: 065
  40. NUVARING [Concomitant]
     Active Substance: ETHINYL ESTRADIOL\ETONOGESTREL
  41. SUNOSI [Concomitant]
     Active Substance: SOLRIAMFETOL
  42. SUNOSI [Concomitant]
     Active Substance: SOLRIAMFETOL
     Route: 065
  43. SUNOSI [Concomitant]
     Active Substance: SOLRIAMFETOL
     Route: 065
  44. SUNOSI [Concomitant]
     Active Substance: SOLRIAMFETOL

REACTIONS (11)
  - Hangover [Not Recovered/Not Resolved]
  - Mood altered [Not Recovered/Not Resolved]
  - Somnolence [Not Recovered/Not Resolved]
  - Muscle tightness [Not Recovered/Not Resolved]
  - Muscle spasms [Not Recovered/Not Resolved]
  - Decreased appetite [Not Recovered/Not Resolved]
  - Tremor [Not Recovered/Not Resolved]
  - Therapeutic response shortened [Unknown]
  - Initial insomnia [Unknown]
  - Depression [Not Recovered/Not Resolved]
  - Anxiety [Not Recovered/Not Resolved]

NARRATIVE: CASE EVENT DATE: 20240101
